FAERS Safety Report 10265414 (Version 1)
Quarter: 2014Q2

REPORT INFORMATION
  Report Type: Spontaneous
  Country: US (occurrence: None)
  Receive Date: 20140625
  Receipt Date: 20140625
  Transmission Date: 20141212
  Serious: Yes (Hospitalization)
  Sender: FDA-Public Use
  Company Number: None

PATIENT
  Age: 29 Year
  Sex: Female
  Weight: 112.7 kg

DRUGS (5)
  1. NICOTROL INHALER [Suspect]
     Indication: SMOKING CESSATION THERAPY
     Dosage: 10MG CARTRIDGE 1-4 A DAY PO
     Route: 048
     Dates: start: 20131212, end: 20140127
  2. NICOTROL INHALER [Suspect]
     Indication: PREGNANCY
     Dosage: 10MG CARTRIDGE 1-4 A DAY PO
     Route: 048
     Dates: start: 20131212, end: 20140127
  3. PRENATAL VITAMINS [Concomitant]
  4. ALBUTEROL PROAIR 90MCG [Concomitant]
  5. LEVOTHYROXINE [Concomitant]

REACTIONS (5)
  - Caesarean section [None]
  - Breech presentation [None]
  - Neonatal respiratory arrest [None]
  - Grunting [None]
  - Maternal drugs affecting foetus [None]
